FAERS Safety Report 10793061 (Version 2)
Quarter: 2015Q1

REPORT INFORMATION
  Report Type: Report from Study
  Country: US (occurrence: US)
  Receive Date: 20150213
  Receipt Date: 20150302
  Transmission Date: 20150721
  Serious: Yes (Death, Hospitalization)
  Sender: FDA-Public Use
  Company Number: US-ACTELION-A-NJ2015-112498

PATIENT
  Age: 66 Year
  Sex: Female

DRUGS (15)
  1. PREGABALIN. [Concomitant]
     Active Substance: PREGABALIN
     Dosage: 75 MG, BID
  2. ACYCLOVIR. [Concomitant]
     Active Substance: ACYCLOVIR
     Dosage: 200 MG, TID
  3. ATIVAN [Concomitant]
     Active Substance: LORAZEPAM
     Dosage: 0.5 MG, PRN
  4. AMLODIPINE [Concomitant]
     Active Substance: AMLODIPINE BESYLATE
     Dosage: 10 MG, QD
  5. PREVACID [Concomitant]
     Active Substance: LANSOPRAZOLE
     Dosage: 30 MG, QD
  6. TYLENOL [Concomitant]
     Active Substance: ACETAMINOPHEN
  7. MULTIVITAMINS [Concomitant]
     Active Substance: VITAMINS
  8. COUMADIN [Concomitant]
     Active Substance: WARFARIN SODIUM
  9. SILDENAFIL. [Concomitant]
     Active Substance: SILDENAFIL
     Dosage: 40 MG, UNK
  10. SENOKOT [Concomitant]
     Active Substance: SENNOSIDES
  11. LETAIRIS [Concomitant]
     Active Substance: AMBRISENTAN
     Dosage: 5 MG, QD
  12. LEVOTHYROXINE [Concomitant]
     Active Substance: LEVOTHYROXINE
     Dosage: 0.125 MG, QD
  13. TRACLEER [Suspect]
     Active Substance: BOSENTAN\BOSENTAN MONOHYDRATE
     Indication: PULMONARY ARTERIAL HYPERTENSION
     Dosage: 125 MG, BID
     Route: 048
  14. TYVASO [Concomitant]
     Active Substance: TREPROSTINIL
     Dosage: UNK, 9 BREATHS, QID
  15. BENAZEPRIL [Concomitant]
     Active Substance: BENAZEPRIL\BENAZEPRIL HYDROCHLORIDE
     Dosage: 20 MG, QD

REACTIONS (10)
  - Pulmonary arterial hypertension [Fatal]
  - Haemoglobin decreased [Unknown]
  - Transfusion [Unknown]
  - Dermatitis [Unknown]
  - Gastrointestinal haemorrhage [Unknown]
  - Malaise [Unknown]
  - Systemic sclerosis [Fatal]
  - Gastrointestinal hypomotility [Unknown]
  - Anaemia [Unknown]
  - Dyspepsia [Unknown]

NARRATIVE: CASE EVENT DATE: 201310
